FAERS Safety Report 5300579-1 (Version None)
Quarter: 2007Q2

REPORT INFORMATION
  Report Type: 
  Country: None (occurrence: None)
  Receive Date: 20070418
  Receipt Date: 20070417
  Transmission Date: 20071010
  Serious: Yes (Hospitalization)
  Sender: FDA-Public Use
  Company Number: US-GLAXOSMITHKLINE-A0647625A

PATIENT
  Age: 90 Year
  Sex: Male

DRUGS (9)
  1. COREG [Suspect]
     Dosage: 12.5MG TWICE PER DAY
     Route: 048
  2. SYNTHROID [Concomitant]
  3. ANAPRIL [Concomitant]
  4. PROTONIX [Concomitant]
  5. PROBENECID [Concomitant]
  6. FLOMAX [Concomitant]
  7. AVODART [Concomitant]
  8. WARFARIN SODIUM [Concomitant]
  9. FUROSEMIDE [Concomitant]

REACTIONS (4)
  - DYSPNOEA [None]
  - FATIGUE [None]
  - VITAMIN B12 DEFICIENCY [None]
  - WEIGHT INCREASED [None]
